FAERS Safety Report 7334926-6 (Version None)
Quarter: 2011Q1

REPORT INFORMATION
  Report Type: 
  Country: None (occurrence: None)
  Receive Date: 20110307
  Receipt Date: 20110228
  Transmission Date: 20110831
  Serious: Yes (Other)
  Sender: FDA-Public Use
  Company Number: US-ROCHE-746510

PATIENT
  Sex: Male
  Weight: 62.1 kg

DRUGS (2)
  1. ACCUTANE [Suspect]
     Indication: ACNE
     Route: 065
     Dates: start: 20040301, end: 20040601
  2. SOTRET [Suspect]
     Route: 065
     Dates: start: 20040301, end: 20040601

REACTIONS (3)
  - COLITIS ULCERATIVE [None]
  - INTESTINAL HAEMORRHAGE [None]
  - DEPRESSION [None]
